FAERS Safety Report 9631318 (Version 1)
Quarter: 2013Q4

REPORT INFORMATION
  Report Type: Spontaneous
  Country: IT (occurrence: None)
  Receive Date: 20131015
  Receipt Date: 20131015
  Transmission Date: 20140711
  Serious: Yes (Other)
  Sender: FDA-Public Use
  Company Number: IT-ALKEM-000180

PATIENT
  Age: 49 Year
  Sex: Male

DRUGS (3)
  1. MYCOPHENOLATE MOFETIL (MYCOPHENOLATE MOFETIL) [Suspect]
     Indication: IMMUNOSUPPRESSANT DRUG THERAPY
  2. BELATACEPT [Suspect]
     Indication: IMMUNOSUPPRESSANT DRUG THERAPY
  3. TACROLIMUS [Suspect]
     Indication: IMMUNOSUPPRESSANT DRUG THERAPY

REACTIONS (1)
  - Oesophageal squamous cell carcinoma [None]
